FAERS Safety Report 20374468 (Version 2)
Quarter: 2022Q2

REPORT INFORMATION
  Report Type: Spontaneous
  Country: US (occurrence: US)
  Receive Date: 20220125
  Receipt Date: 20220407
  Transmission Date: 20220721
  Serious: No
  Sender: FDA-Public Use
  Company Number: US-EPICPHARMA-US-2022EPCSPO00070

PATIENT
  Age: 68 Year
  Sex: Female

DRUGS (2)
  1. FUROSEMIDE [Suspect]
     Active Substance: FUROSEMIDE
     Indication: Product used for unknown indication
     Route: 065
  2. ENTRESTO [Suspect]
     Active Substance: SACUBITRIL\VALSARTAN
     Indication: Product used for unknown indication
     Dosage: 24/26MG
     Route: 048
     Dates: start: 202108

REACTIONS (6)
  - Memory impairment [Not Recovered/Not Resolved]
  - Fear [Unknown]
  - Depressed mood [Unknown]
  - Fatigue [Unknown]
  - Presyncope [Unknown]
  - Illness [Unknown]

NARRATIVE: CASE EVENT DATE: 20210901
